FAERS Safety Report 22353912 (Version 2)
Quarter: 2024Q4

REPORT INFORMATION
  Report Type: Report from Study
  Country: BR (occurrence: BR)
  Receive Date: 20230523
  Receipt Date: 20241112
  Transmission Date: 20250115
  Serious: Yes (Hospitalization)
  Sender: CELLTRION
  Company Number: BR-CELLTRION INC.-2023BR010566

PATIENT

DRUGS (12)
  1. INFLIXIMAB-DYYB [Suspect]
     Active Substance: INFLIXIMAB-DYYB
     Indication: Ankylosing spondylitis
     Dosage: EVERY 30 DAYS
  2. INFLIXIMAB-DYYB [Suspect]
     Active Substance: INFLIXIMAB-DYYB
     Dosage: EVERY 30 DAYS
  3. INFLIXIMAB-DYYB [Suspect]
     Active Substance: INFLIXIMAB-DYYB
     Dosage: EVERY 30 DAYS
  4. INFLIXIMAB-DYYB [Suspect]
     Active Substance: INFLIXIMAB-DYYB
     Dosage: EVERY 30 DAYS
  5. INFLIXIMAB-DYYB [Suspect]
     Active Substance: INFLIXIMAB-DYYB
     Dosage: EVERY 30 DAYS
  6. INFLIXIMAB-DYYB [Suspect]
     Active Substance: INFLIXIMAB-DYYB
     Dosage: 5 AMPOULES EVERY 8 WEEKS
     Route: 042
     Dates: start: 20221130, end: 20221130
  7. CODEINE [Concomitant]
     Active Substance: CODEINE
     Indication: Ankylosing spondylitis
     Dosage: 1 PILL A DAY
     Route: 048
  8. PREGABALIN [Concomitant]
     Active Substance: PREGABALIN
     Indication: Ankylosing spondylitis
     Dosage: 1 PILL A DAY
     Route: 048
  9. CIZAX [Concomitant]
     Indication: Ankylosing spondylitis
     Dosage: 1 PILL A DAY
     Route: 048
  10. RIVOTRIL [Concomitant]
     Active Substance: CLONAZEPAM
     Indication: Ankylosing spondylitis
     Dosage: 1 PILL A DAY
     Route: 048
  11. CYMBALTA [Concomitant]
     Active Substance: DULOXETINE HYDROCHLORIDE
     Indication: Ankylosing spondylitis
     Dosage: 2 PILLS A DAY
     Route: 048
  12. INDOMETACINA [INDOMETACIN] [Concomitant]
     Indication: Ankylosing spondylitis
     Dosage: 2 PILLS A DAY
     Route: 048

REACTIONS (5)
  - Infusion related hypersensitivity reaction [Recovering/Resolving]
  - Infusion related hypersensitivity reaction [Recovering/Resolving]
  - Documented hypersensitivity to administered product [Recovering/Resolving]
  - Contraindication to medical treatment [Recovering/Resolving]
  - Intentional product use issue [Unknown]

NARRATIVE: CASE EVENT DATE: 20221129
